FAERS Safety Report 6124341-5 (Version None)
Quarter: 2009Q1

REPORT INFORMATION
  Report Type: 
  Country: None (occurrence: None)
  Receive Date: 20090319
  Receipt Date: 20090312
  Transmission Date: 20090719
  Serious: Yes (Other)
  Sender: FDA-Public Use
  Company Number: ES-AVENTIS-200911255EU

PATIENT
  Age: 75 Year
  Sex: Female

DRUGS (9)
  1. CLEXANE [Suspect]
     Indication: PROPHYLAXIS
     Route: 058
     Dates: start: 20090105, end: 20090110
  2. DURAGESIC-100 [Concomitant]
     Route: 062
  3. GELOCATIL [Concomitant]
     Dosage: DOSE: UNK
     Route: 048
  4. LANTUS [Concomitant]
     Indication: DIABETES MELLITUS
     Route: 058
  5. LEXATIN [Concomitant]
     Dosage: DOSE: UNK
     Route: 048
  6. NOLOTIL                            /00473101/ [Concomitant]
     Dosage: DOSE: UNK
     Route: 048
  7. RENITEC                            /00574901/ [Concomitant]
     Route: 048
  8. SEGURIL                            /00032601/ [Concomitant]
     Route: 048
  9. URBASON [Concomitant]
     Indication: CHRONIC OBSTRUCTIVE PULMONARY DISEASE
     Route: 048
     Dates: start: 20080801

REACTIONS (2)
  - HYPOCALCAEMIA [None]
  - THROMBOCYTOPENIA [None]
